FAERS Safety Report 4558489-3 (Version None)
Quarter: 2005Q1

REPORT INFORMATION
  Report Type: 
  Country: None (occurrence: None)
  Receive Date: 20050121
  Receipt Date: 20040709
  Transmission Date: 20050727
  Serious: Yes (Hospitalization, Disabling, Other)
  Sender: FDA-Public Use
  Company Number: US-MERCK-0407USA00887

PATIENT
  Age: 49 Year
  Sex: Male
  Weight: 100 kg

DRUGS (7)
  1. VIOXX [Suspect]
     Indication: BACK PAIN
     Route: 048
     Dates: start: 20010101, end: 20021201
  2. MOTRIN [Concomitant]
     Indication: PAIN
     Route: 065
     Dates: start: 19940101, end: 20020101
  3. TYLENOL [Concomitant]
     Indication: PAIN
     Route: 065
     Dates: start: 19940101
  4. [THERAPY UNSPECIFIED] [Concomitant]
     Route: 065
  5. ULTRAM [Concomitant]
     Route: 065
  6. VICODIN [Concomitant]
     Route: 065
  7. ATENOLOL MSD [Concomitant]
     Route: 065
     Dates: start: 20021101

REACTIONS (13)
  - ANGINA UNSTABLE [None]
  - ANXIETY [None]
  - ATHEROSCLEROSIS [None]
  - BLOOD CHOLESTEROL INCREASED [None]
  - CORONARY ARTERY OCCLUSION [None]
  - DEPRESSION [None]
  - DYSLIPIDAEMIA [None]
  - INJURY [None]
  - MYOCARDIAL INFARCTION [None]
  - NAUSEA [None]
  - OBESITY [None]
  - STRESS [None]
  - VENTRICULAR EXTRASYSTOLES [None]
